FAERS Safety Report 20338893 (Version 1)
Quarter: 2022Q1

REPORT INFORMATION
  Report Type: Other
  Country: US (occurrence: None)
  Receive Date: 20220116
  Receipt Date: 20220116
  Transmission Date: 20220424
  Serious: Yes (Life-Threatening)
  Sender: FDA-Public Use
  Company Number: US-ROCHE-2977076

PATIENT
  Sex: Male

DRUGS (4)
  1. OCREVUS [Suspect]
     Active Substance: OCRELIZUMAB
     Indication: Relapsing multiple sclerosis
     Dosage: 05/MAY/2021
     Route: 065
     Dates: start: 20181116, end: 20210505
  2. TECFIDERA [Concomitant]
     Active Substance: DIMETHYL FUMARATE
  3. REBIF [Concomitant]
     Active Substance: INTERFERON BETA-1A
  4. AVONEX [Concomitant]
     Active Substance: INTERFERON BETA-1A

REACTIONS (1)
  - Prostate cancer [Not Recovered/Not Resolved]
